FAERS Safety Report 5372716-4 (Version None)
Quarter: 2007Q2

REPORT INFORMATION
  Report Type: 
  Country: None (occurrence: None)
  Receive Date: 20070626
  Receipt Date: 20070611
  Transmission Date: 20071010
  Serious: Yes (Death, Other)
  Sender: FDA-Public Use
  Company Number: 2007US000800

PATIENT
  Age: 14 Year
  Sex: Female

DRUGS (10)
  1. AMBISOME [Suspect]
     Indication: PNEUMONIA FUNGAL
     Dosage: 100 MG ; 150 MG : UID/QD, IV DRIP
     Route: 041
     Dates: start: 20070224, end: 20070228
  2. AMBISOME [Suspect]
     Indication: PNEUMONIA FUNGAL
     Dosage: 100 MG ; 150 MG : UID/QD, IV DRIP
     Route: 041
     Dates: start: 20070301, end: 20070314
  3. PROGRAF [Concomitant]
  4. MINOCYCLINE HCL [Concomitant]
  5. VANCOMYCIN HYDROCHLORIDE [Concomitant]
  6. ZOVIRAX [Concomitant]
  7. CYCLOPHOSPHAMIDE [Concomitant]
  8. FLUMARIN (FLOMOXEF SODIUM( [Concomitant]
  9. CARBENIN (BETAMIPRON, PANIPENEM) [Concomitant]
  10. METHOTREXATE [Concomitant]

REACTIONS (7)
  - BLOOD BETA-D-GLUCAN DECREASED [None]
  - BONE MARROW TRANSPLANT [None]
  - CONDITION AGGRAVATED [None]
  - COUGH [None]
  - HYPOKALAEMIA [None]
  - INFLAMMATION [None]
  - PULMONARY HAEMORRHAGE [None]
